FAERS Safety Report 10035899 (Version 1)
Quarter: 2014Q1

REPORT INFORMATION
  Report Type: Report from Study
  Country: ES (occurrence: ES)
  Receive Date: 20140325
  Receipt Date: 20140325
  Transmission Date: 20141002
  Serious: Yes (Hospitalization, Other)
  Sender: FDA-Public Use
  Company Number: ES-VERTEX PHARMACEUTICALS INC-2014-001501

PATIENT
  Age: 51 Year
  Sex: Female
  Weight: 54.3 kg

DRUGS (14)
  1. TELAPREVIR [Suspect]
     Indication: HEPATITIS C
     Dosage: 750 MG, TID
     Route: 048
     Dates: start: 20120605, end: 20120710
  2. RIBAVIRIN [Suspect]
     Indication: HEPATITIS C
     Dosage: 600 MG, QD
     Route: 065
     Dates: start: 201207
  3. RIBAVIRIN [Suspect]
     Dosage: 1000 MG, QD
     Route: 065
     Dates: start: 20120605, end: 20120710
  4. PEGASYS [Suspect]
     Indication: HEPATITIS C
     Dosage: 180 ?G, QW
     Route: 065
     Dates: start: 20120605, end: 20120710
  5. PEGASYS [Suspect]
     Dosage: 135 ?G, QW
     Route: 065
     Dates: start: 201207
  6. KIVEXA [Concomitant]
     Dosage: 1 DF, QD
     Route: 065
  7. ISENTRESS [Concomitant]
     Dosage: 1 DF, BID
     Route: 065
  8. SUMIAL [Concomitant]
     Dosage: 20 MG, QD
     Route: 065
  9. ANAGASTRA [Concomitant]
     Dosage: 1 DF, QD
     Route: 065
  10. FORTZAAR [Concomitant]
     Dosage: 1 DF, QD
     Route: 065
  11. AMLODIPINE [Concomitant]
     Dosage: 5 MG, QD
     Route: 065
  12. ABACAVIR [Concomitant]
     Indication: ANTIVIRAL TREATMENT
     Dates: start: 201206
  13. LAMIVUDINE [Concomitant]
     Indication: ANTIVIRAL TREATMENT
     Dates: start: 201206
  14. RALTEGRAVIR [Concomitant]
     Indication: ANTIVIRAL TREATMENT
     Dates: start: 201206

REACTIONS (8)
  - Diabetes mellitus [Recovered/Resolved]
  - Anaemia [Unknown]
  - Nausea [Recovered/Resolved]
  - Vomiting [Unknown]
  - Diarrhoea [Unknown]
  - Platelet count decreased [Unknown]
  - Oropharyngeal candidiasis [Unknown]
  - Anal pruritus [Unknown]
